FAERS Safety Report 24392200 (Version 1)
Quarter: 2024Q4

REPORT INFORMATION
  Report Type: Spontaneous
  Country: CN (occurrence: CN)
  Receive Date: 20241003
  Receipt Date: 20241003
  Transmission Date: 20250114
  Serious: Yes (Other)
  Sender: NOVARTIS
  Company Number: CN-002147023-NVSC2024CN194391

PATIENT
  Age: 74 Year
  Sex: Male

DRUGS (2)
  1. CERITINIB [Suspect]
     Active Substance: CERITINIB
     Indication: Non-small cell lung cancer
     Dosage: UNK
     Route: 048
     Dates: start: 20200402, end: 20221118
  2. CRIZOTINIB [Suspect]
     Active Substance: CRIZOTINIB
     Indication: Non-small cell lung cancer
     Dosage: UNK
     Route: 065
     Dates: start: 20150624

REACTIONS (2)
  - Non-small cell lung cancer [Unknown]
  - Malignant neoplasm progression [Unknown]

NARRATIVE: CASE EVENT DATE: 20200402
